FAERS Safety Report 8185886-X (Version None)
Quarter: 2012Q1

REPORT INFORMATION
  Report Type: 
  Country: None (occurrence: None)
  Receive Date: 20120305
  Receipt Date: 20120111
  Transmission Date: 20120608
  Serious: Yes (Hospitalization, Other)
  Sender: FDA-Public Use
  Company Number: US-ROCHE-793774

PATIENT
  Sex: Male
  Weight: 81.72 kg

DRUGS (1)
  1. ACCUTANE [Suspect]
     Indication: ACNE
     Dates: start: 19930101, end: 19970101

REACTIONS (15)
  - INTESTINAL HAEMORRHAGE [None]
  - HEPATIC ENZYME INCREASED [None]
  - ABSCESS [None]
  - DIVERTICULITIS [None]
  - INFLAMMATORY BOWEL DISEASE [None]
  - IRRITABLE BOWEL SYNDROME [None]
  - DEPRESSION [None]
  - UMBILICAL HERNIA [None]
  - BLOOD TRIGLYCERIDES INCREASED [None]
  - INTESTINAL OBSTRUCTION [None]
  - HERNIA [None]
  - INSOMNIA [None]
  - COLITIS ULCERATIVE [None]
  - BLOOD CHOLESTEROL INCREASED [None]
  - INCISIONAL HERNIA [None]
